FAERS Safety Report 6191756-9 (Version None)
Quarter: 2009Q2

REPORT INFORMATION
  Report Type: 
  Country: None (occurrence: None)
  Receive Date: 20090515
  Receipt Date: 20090507
  Transmission Date: 20091009
  Serious: Yes (Hospitalization)
  Sender: FDA-Public Use
  Company Number: GB-PFIZER INC-2009198825

PATIENT
  Age: 72 Year

DRUGS (2)
  1. BLINDED *PLACEBO [Suspect]
     Indication: BLADDER TRANSITIONAL CELL CARCINOMA
     Dosage: UNK
     Dates: start: 20090212, end: 20090402
  2. BLINDED CELECOXIB [Suspect]
     Indication: BLADDER TRANSITIONAL CELL CARCINOMA
     Dosage: UNK
     Dates: start: 20090212, end: 20090402

REACTIONS (3)
  - CONFUSIONAL STATE [None]
  - RENAL FAILURE [None]
  - URINARY TRACT INFECTION [None]
